FAERS Safety Report 20016159 (Version 1)
Quarter: 2021Q4

REPORT INFORMATION
  Report Type: Spontaneous
  Country: US (occurrence: None)
  Receive Date: 20211103
  Receipt Date: 20211103
  Transmission Date: 20220303
  Serious: No
  Sender: FDA-Public Use
  Company Number: None

PATIENT
  Sex: Female

DRUGS (1)
  1. VINORELBINE TARTRATE [Suspect]
     Active Substance: VINORELBINE TARTRATE
     Indication: Breast cancer
     Dosage: FREQUENCY : WEEKLY;?
     Route: 042
     Dates: start: 202108

REACTIONS (6)
  - Palmar-plantar erythrodysaesthesia syndrome [None]
  - Loss of personal independence in daily activities [None]
  - Mouth ulceration [None]
  - Oral pain [None]
  - Eating disorder [None]
  - Skin discolouration [None]
